FAERS Safety Report 4787099-8 (Version None)
Quarter: 2005Q4

REPORT INFORMATION
  Report Type: 
  Country: None (occurrence: None)
  Receive Date: 20051004
  Receipt Date: 20050922
  Transmission Date: 20060501
  Serious: Yes (Other)
  Sender: FDA-Public Use
  Company Number: BE-GILEAD-2005-0008735

PATIENT
  Age: 61 Year
  Sex: Male

DRUGS (9)
  1. HEPSERA [Suspect]
     Dates: start: 20040301, end: 20050101
  2. HEPSERA [Suspect]
     Dates: start: 20050101
  3. MEDROL [Concomitant]
     Dates: start: 19950101
  4. SANDIMMUNE [Concomitant]
     Dates: start: 19950101
  5. CELLCEPT [Concomitant]
     Dates: start: 19980101
  6. CALCIUM CARBONATE [Concomitant]
  7. 1 ALFA LEO [Concomitant]
     Dates: start: 19960101
  8. COZAAR [Concomitant]
  9. AMLOR [Concomitant]

REACTIONS (4)
  - NEPHROPATHY TOXIC [None]
  - PROTEINURIA [None]
  - RENAL IMPAIRMENT [None]
  - RENAL TUBULAR ATROPHY [None]
